FAERS Safety Report 8412783-4 (Version None)
Quarter: 2012Q2

REPORT INFORMATION
  Report Type: 
  Country: None (occurrence: None)
  Receive Date: 20120605
  Receipt Date: 20120531
  Transmission Date: 20120825
  Serious: Yes (Other)
  Sender: FDA-Public Use
  Company Number: US-TEVA-340957USA

PATIENT
  Age: 70 Year
  Sex: Female

DRUGS (2)
  1. CORTICOSTEROID [Suspect]
     Dosage: UNKNOWN
     Dates: start: 20120101
  2. TREANDA [Suspect]
     Indication: MANTLE CELL LYMPHOMA
     Route: 042
     Dates: start: 20120101

REACTIONS (1)
  - SUNBURN [None]
